FAERS Safety Report 9399267 (Version 4)
Quarter: 2013Q3

REPORT INFORMATION
  Report Type: Spontaneous
  Country: US (occurrence: None)
  Receive Date: 20130709
  Receipt Date: 20130819
  Transmission Date: 20140515
  Serious: Yes (Hospitalization)
  Sender: FDA-Public Use
  Company Number: AUR-APL-2013-05754

PATIENT
  Age: 59 Year
  Sex: Female
  Weight: 76.9 kg

DRUGS (27)
  1. CEFTRIAXONE [Suspect]
     Indication: FEBRILE NEUTROPENIA
     Dosage: (1 GM, 1 IN 1 D)
     Route: 042
     Dates: start: 20130619
  2. CYTARABINE (CYTARABINE) [Suspect]
     Indication: MYELODYSPLASTIC SYNDROME
     Dosage: (DAY 1 OF INDUCTION), INDUCTION: CONTINUOUS INFUSION ON DAY 1-7
     Route: 042
     Dates: start: 20130607, end: 20130613
  3. DAUNORUBICIN [Suspect]
     Indication: MYELODYSPLASTIC SYNDROME
     Dosage: (DAY 1 OF INDUCTION),  INDUCTION: ONCE DAILY ON DAYS 1-3
     Route: 040
     Dates: start: 20130607, end: 20130610
  4. ACYCLOVIR (ACICLOVIR) (ACICLOVIR) [Concomitant]
  5. CALCIUM CARBONATE (CALCIUM CARBONATE) [Concomitant]
  6. ALLOPURINOL( ALLOPURINOL) [Concomitant]
  7. CHLORHEXIDINE (CHLORHEXIDINE) [Concomitant]
  8. DOCUSATE (DOCUSATE) [Concomitant]
  9. CYMBALTA (DULOXETINE HYDROCHLORIDE) [Concomitant]
  10. ADVAIR DISC( SERETIDE) [Concomitant]
  11. IBUPROFEN (IBUPROFEN) [Concomitant]
  12. ATIVAN (LORAZEPAM) [Concomitant]
  13. MAGNESIUM OXIDE (MAGNESIUM OXIDE) [Concomitant]
  14. MICAFUNGIN (MICAFUNGIN) [Concomitant]
  15. MORPHINE [Concomitant]
  16. PRILOSEC [Concomitant]
  17. ONDANSETRON (ONDANSETRON) [Concomitant]
  18. OXYCODONE (OXYCODONE) [Concomitant]
  19. POTASSIUM CHLORIDE (POTASSIUM CHLORIDE) [Concomitant]
  20. MIRALAX [Concomitant]
  21. SENNA (SENNA ALEXANDRINA)? [Concomitant]
  22. SIMETHICONE (SIMETICONE) [Concomitant]
  23. TRAZODONE (TRAZODONE) [Concomitant]
  24. ARMOUR THYROID (THYROID) [Concomitant]
  25. ALBUTEROL (SALBUTAMOL) [Concomitant]
  26. LEVOFLOXACIN (LEVOFLOXACIN) [Concomitant]
  27. ESTRADIOL (ESTRADIOL) (GEL) [Concomitant]

REACTIONS (5)
  - Streptococcus test positive [None]
  - Febrile neutropenia [None]
  - Myalgia [None]
  - Rash generalised [None]
  - Dermatitis [None]
